FAERS Safety Report 8973890 (Version 1)
Quarter: 2012Q4

REPORT INFORMATION
  Report Type: 
  Country: MX (occurrence: MX)
  Receive Date: 20121218
  Receipt Date: 20121218
  Transmission Date: 20130627
  Serious: Yes (Death)
  Sender: FDA-Public Use
  Company Number: MX-GLAXOSMITHKLINE-A1005608A

PATIENT
  Sex: Female

DRUGS (2)
  1. SERETIDE [Suspect]
     Indication: LUNG DISORDER
     Route: 055
  2. VENTOLIN [Suspect]
     Indication: COUGH
     Route: 065

REACTIONS (1)
  - Bronchial disorder [Fatal]
